FAERS Safety Report 20452849 (Version 2)
Quarter: 2022Q1

REPORT INFORMATION
  Report Type: Spontaneous
  Country: JP (occurrence: JP)
  Receive Date: 20220210
  Receipt Date: 20220318
  Transmission Date: 20220423
  Serious: Yes (Other)
  Sender: FDA-Public Use
  Company Number: JP-GSKNCCC-Case-01416963_AE-54617

PATIENT
  Age: 10 Year
  Sex: Male
  Weight: 33.9 kg

DRUGS (5)
  1. LAMICTAL [Suspect]
     Active Substance: LAMOTRIGINE
     Indication: Epilepsy
     Dosage: UNK
     Dates: start: 201805
  2. LAMICTAL [Suspect]
     Active Substance: LAMOTRIGINE
     Dosage: 4 MG, QOD
     Dates: start: 20181015
  3. LAMICTAL [Suspect]
     Active Substance: LAMOTRIGINE
     Dosage: 50 MG, BID
     Dates: start: 20201013
  4. DEPAKENE [Suspect]
     Active Substance: VALPROIC ACID
     Indication: Epilepsy
     Dosage: 300 MG, 1D
  5. LEVETIRACETAM [Concomitant]
     Active Substance: LEVETIRACETAM
     Indication: Epilepsy

REACTIONS (2)
  - Deafness [Unknown]
  - Product use issue [Unknown]

NARRATIVE: CASE EVENT DATE: 20220207
